FAERS Safety Report 14493732 (Version 2)
Quarter: 2018Q1

REPORT INFORMATION
  Report Type: Spontaneous
  Country: IT (occurrence: IT)
  Receive Date: 20180206
  Receipt Date: 20180208
  Transmission Date: 20180509
  Serious: Yes (Hospitalization)
  Sender: FDA-Public Use
  Company Number: IT-BAYER-2018-023620

PATIENT
  Age: 67 Year
  Sex: Female

DRUGS (1)
  1. ULTRAVIST [Suspect]
     Active Substance: IOPROMIDE
     Indication: ANGIOGRAM
     Dosage: 70 ML, ONCE
     Route: 040
     Dates: start: 20180122, end: 20180122

REACTIONS (4)
  - Dysphonia [Recovered/Resolved]
  - Face oedema [Recovered/Resolved]
  - Pharyngeal oedema [Recovered/Resolved]
  - Abdominal distension [Recovered/Resolved]

NARRATIVE: CASE EVENT DATE: 20180122
